FAERS Safety Report 4811993-2 (Version None)
Quarter: 2005Q4

REPORT INFORMATION
  Report Type: 
  Country: None (occurrence: None)
  Receive Date: 20051026
  Receipt Date: 20051012
  Transmission Date: 20060501
  Serious: Yes (Other)
  Sender: FDA-Public Use
  Company Number: 2005142047

PATIENT
  Age: 64 Year
  Sex: Male

DRUGS (5)
  1. EPIRUBICIN [Suspect]
     Indication: LYMPHOMA
     Dosage: CYCLICAL
     Dates: start: 20040101
  2. CYCLOPHOSPHAMIDE [Suspect]
     Indication: LYMPHOMA
     Dosage: CYCLICAL
     Dates: start: 20040101
  3. VINCRISTINE [Suspect]
     Dosage: CYCLICAL
  4. PREDNISONE [Suspect]
     Indication: LYMPHOMA
     Dosage: CYCLICAL
     Dates: start: 20040101
  5. RITUXIMAB                        (RITUXIMAB) [Suspect]
     Indication: LYMPHOMA
     Dosage: CYCLICAL
     Dates: start: 20040101

REACTIONS (3)
  - HEPATITIS ACUTE [None]
  - VASCULITIS [None]
  - VIRAL HEPATITIS CARRIER [None]
